FAERS Safety Report 10048619 (Version 1)
Quarter: 2014Q1

REPORT INFORMATION
  Report Type: Spontaneous
  Country: US (occurrence: None)
  Receive Date: 20140327
  Receipt Date: 20140327
  Transmission Date: 20141002
  Serious: Yes (Hospitalization)
  Sender: FDA-Public Use
  Company Number: UTC-046224

PATIENT
  Age: 06 Year
  Sex: Female
  Weight: 22.2 kg

DRUGS (3)
  1. REMODULIN (1 MILLIGRAM/MILLILITERS, INJECTION FOR INFUSION) (TREPROSTINIL SODIUM) [Suspect]
     Indication: PULMONARY ARTERIAL HYPERTENSION
     Dosage: 132.48 UG/KG (0.092 UG/KG, 1 IN 1 MIN), INTRAVENOUS DRIP
     Route: 041
     Dates: start: 20120309
  2. COUMADIN (WARFARIN SODIUM) [Concomitant]
  3. ADCIRCA (TADALAFIL) [Concomitant]

REACTIONS (2)
  - Catheter site extravasation [None]
  - Device leakage [None]
